FAERS Safety Report 4710963-2 (Version None)
Quarter: 2005Q2

REPORT INFORMATION
  Report Type: 
  Country: None (occurrence: None)
  Receive Date: 20050629
  Receipt Date: 20050323
  Transmission Date: 20051028
  Serious: No
  Sender: FDA-Public Use
  Company Number: 04P-163-0282208-00

PATIENT
  Age: 25 Year
  Sex: Female

DRUGS (3)
  1. HUMIRA [Suspect]
     Indication: RHEUMATOID ARTHRITIS
     Dosage: 40 MG, 1 IN 2 WK, SUBCUTANEOUS
     Route: 058
     Dates: start: 20041117
  2. HYDROCODONE BITARTRATE [Concomitant]
  3. OXYCOCET [Concomitant]

REACTIONS (8)
  - DYSPHONIA [None]
  - INJECTION SITE PRURITUS [None]
  - INJECTION SITE URTICARIA [None]
  - INJECTION SITE WARMTH [None]
  - ORAL PAIN [None]
  - PRURITUS GENERALISED [None]
  - RASH PAPULAR [None]
  - STOMATITIS [None]
